FAERS Safety Report 14578026 (Version 1)
Quarter: 2018Q1

REPORT INFORMATION
  Report Type: Other
  Country: IT (occurrence: IT)
  Receive Date: 20180227
  Receipt Date: 20180227
  Transmission Date: 20180509
  Serious: Yes (Hospitalization)
  Sender: FDA-Public Use
  Company Number: IT-VALIDUS PHARMACEUTICALS LLC-IT-2018VAL000395

PATIENT
  Age: 96 Year
  Sex: Female

DRUGS (1)
  1. LASIX [Suspect]
     Active Substance: FUROSEMIDE
     Indication: CHRONIC KIDNEY DISEASE
     Dosage: UNK
     Route: 048
     Dates: start: 20170101, end: 20171019

REACTIONS (5)
  - Infection [Unknown]
  - Anuria [Unknown]
  - Gravitational oedema [Unknown]
  - Dyspnoea [Unknown]
  - Sopor [Unknown]

NARRATIVE: CASE EVENT DATE: 20171019
